FAERS Safety Report 18990788 (Version 1)
Quarter: 2021Q1

REPORT INFORMATION
  Report Type: Spontaneous
  Country: DE (occurrence: DE)
  Receive Date: 20210310
  Receipt Date: 20210310
  Transmission Date: 20210420
  Serious: Yes (Life-Threatening, Hospitalization)
  Sender: FDA-Public Use
  Company Number: DE-ROCHE-2787165

PATIENT
  Age: 3 Year
  Sex: Male
  Weight: 11 kg

DRUGS (5)
  1. CICLOSPORIN A [Suspect]
     Active Substance: CYCLOSPORINE
     Indication: LIVER TRANSPLANT
     Route: 048
  2. KAVIT [Concomitant]
     Indication: LIVER TRANSPLANT
     Route: 048
  3. FERROSANOL [Concomitant]
     Active Substance: FERROUS GLUCONATE
     Indication: LIVER TRANSPLANT
     Route: 048
  4. CELLCEPT [Suspect]
     Active Substance: MYCOPHENOLATE MOFETIL\MYCOPHENOLATE MOFETIL HYDROCHLORIDE
     Indication: LIVER TRANSPLANT
     Route: 048
  5. FERRUM HAUSMANN [Concomitant]
     Indication: LIVER TRANSPLANT
     Route: 048

REACTIONS (3)
  - Pneumonia [Unknown]
  - Respiratory failure [Unknown]
  - Febrile convulsion [Unknown]

NARRATIVE: CASE EVENT DATE: 20190517
